FAERS Safety Report 4837000-3 (Version None)
Quarter: 2005Q4

REPORT INFORMATION
  Report Type: 
  Country: None (occurrence: None)
  Receive Date: 20051121
  Receipt Date: 20051108
  Transmission Date: 20060501
  Serious: Yes (Hospitalization)
  Sender: FDA-Public Use
  Company Number: 27952

PATIENT
  Age: 82 Year
  Sex: Female

DRUGS (1)
  1. FLECAINIDE ACETATE [Suspect]
     Indication: ATRIAL FIBRILLATION
     Dosage: 100 MG ORAL
     Route: 048
     Dates: start: 20040815, end: 20050726

REACTIONS (8)
  - ACUTE PULMONARY OEDEMA [None]
  - COUGH [None]
  - CRYPTOGENIC ORGANIZING PNEUMONIA [None]
  - DYSPNOEA EXERTIONAL [None]
  - HYPOXIA [None]
  - LUNG DISORDER [None]
  - PYREXIA [None]
  - RESPIRATORY DISTRESS [None]
